FAERS Safety Report 18268609 (Version 1)
Quarter: 2020Q3

REPORT INFORMATION
  Report Type: Spontaneous
  Country: US (occurrence: US)
  Receive Date: 20200915
  Receipt Date: 20200915
  Transmission Date: 20201103
  Serious: No
  Sender: FDA-Public Use
  Company Number: US-PERRIGO-19US014162

PATIENT
  Age: 55 Year
  Sex: Female
  Weight: 65.76 kg

DRUGS (1)
  1. MINOXIDIL. [Suspect]
     Active Substance: MINOXIDIL
     Indication: ALOPECIA
     Dosage: UNKNOWN OR 1 ML, BID
     Route: 061
     Dates: start: 20191111, end: 20191114

REACTIONS (9)
  - Rash macular [Recovering/Resolving]
  - Periorbital oedema [Recovering/Resolving]
  - Product administered at inappropriate site [Recovered/Resolved]
  - Underdose [Recovered/Resolved]
  - Rash pruritic [Recovering/Resolving]
  - Urticaria [Recovering/Resolving]
  - Hypersensitivity [Not Recovered/Not Resolved]
  - Swelling face [Recovering/Resolving]
  - Ear swelling [Recovering/Resolving]

NARRATIVE: CASE EVENT DATE: 20191111
